FAERS Safety Report 7209322-2 (Version None)
Quarter: 2011Q1

REPORT INFORMATION
  Report Type: 
  Country: None (occurrence: None)
  Receive Date: 20110104
  Receipt Date: 20101207
  Transmission Date: 20110831
  Serious: Yes (Hospitalization)
  Sender: FDA-Public Use
  Company Number: PHHY2010IS87106

PATIENT
  Sex: Female

DRUGS (17)
  1. SERTRALINE HYDROCHLORIDE [Interacting]
     Indication: DEPRESSION
     Dosage: 100 MG, UNK
  2. MODAFINIL [Interacting]
     Indication: DISTURBANCE IN ATTENTION
     Dosage: 400 MG, UNK
  3. VITAMIN D [Concomitant]
  4. METHYLPHENIDATE [Suspect]
     Indication: ATTENTION DEFICIT/HYPERACTIVITY DISORDER
     Dosage: 54 MG, UNK
  5. METOPROLOL SUCCINATE [Concomitant]
     Dosage: UNK
  6. ATORVASTATIN [Concomitant]
  7. CLOMIPRAMINE HCL [Interacting]
     Indication: DEPRESSION
     Dosage: 75 MG, BID
  8. LEVOMEPROMAZINE [Interacting]
     Indication: SLEEP DISORDER
     Dosage: 50 MG, UNK
  9. LEVOMEPROMAZINE [Interacting]
     Dosage: 25 MG, UNK
  10. DULOXETIME HYDROCHLORIDE [Interacting]
     Indication: DEPRESSION
     Dosage: 30 MG, UNK
  11. TRAMADOL HCL [Interacting]
  12. RABEPRAZOLE SODIUM [Concomitant]
  13. MODAFINIL [Interacting]
     Dosage: 100 MG, UNK
  14. MAGNESIUM [Concomitant]
  15. METFORMIN [Concomitant]
  16. LEVOTHYROXINE [Concomitant]
     Dosage: UNK
  17. ACETAMINOPHEN W/ CODEINE [Concomitant]
     Dosage: UNK

REACTIONS (15)
  - ORTHOSTATIC HYPOTENSION [None]
  - HYPERHIDROSIS [None]
  - FLANK PAIN [None]
  - DRUG INTERACTION [None]
  - DRY MOUTH [None]
  - DRUG LEVEL INCREASED [None]
  - GENERAL PHYSICAL HEALTH DETERIORATION [None]
  - ANAEMIA [None]
  - PALPITATIONS [None]
  - RENAL IMPAIRMENT [None]
  - SEROTONIN SYNDROME [None]
  - PRURITUS [None]
  - NAUSEA [None]
  - WEIGHT DECREASED [None]
  - DECREASED APPETITE [None]
